FAERS Safety Report 5389649-X (Version None)
Quarter: 2007Q3

REPORT INFORMATION
  Report Type: 
  Country: None (occurrence: None)
  Receive Date: 20070717
  Receipt Date: 20070706
  Transmission Date: 20080115
  Serious: Yes (Other)
  Sender: FDA-Public Use
  Company Number: GB-PFIZER INC-2007056678

PATIENT
  Age: 30 Year
  Sex: Female

DRUGS (4)
  1. LYRICA [Suspect]
     Indication: PROCEDURAL PAIN
     Route: 048
  2. TRAMADOL HCL [Concomitant]
  3. BUPRENORPHINE HCL [Concomitant]
  4. AMITRIPTYLINE HCL [Concomitant]

REACTIONS (6)
  - ACCIDENTAL OVERDOSE [None]
  - DISTURBANCE IN ATTENTION [None]
  - DRUG PRESCRIBING ERROR [None]
  - DRY MOUTH [None]
  - INFLUENZA LIKE ILLNESS [None]
  - PAIN IN EXTREMITY [None]
